FAERS Safety Report 8470573-0 (Version None)
Quarter: 2012Q2

REPORT INFORMATION
  Report Type: 
  Country: None (occurrence: None)
  Receive Date: 20120627
  Receipt Date: 20120622
  Transmission Date: 20120825
  Serious: Yes (Hospitalization, Disabling)
  Sender: FDA-Public Use
  Company Number: PHEH2011US009266

PATIENT
  Sex: Female

DRUGS (17)
  1. GILENYA [Suspect]
     Indication: MULTIPLE SCLEROSIS
     Dosage: 0.5 MG, QD
     Route: 048
     Dates: start: 20111114
  2. ZOFRAN [Concomitant]
     Dosage: UNK UKN, UNK
  3. PROZAC [Concomitant]
     Dosage: 20 MG, UNK
  4. NEURONTIN [Suspect]
     Indication: PAIN
     Dosage: 300 MG, TID
     Dates: start: 20111201
  5. TALWIN [Concomitant]
     Dosage: UNK UKN, UNK
  6. VALIUM [Concomitant]
     Dosage: UNK UKN, UNK
  7. PROPRANOLOL [Concomitant]
     Dosage: 60 MG, UNK
  8. ZANTAC [Concomitant]
     Dosage: UNK UKN, UNK
  9. SOLU-MEDROL [Concomitant]
     Dosage: UNK UKN, UNK
  10. NICODERM [Suspect]
     Dosage: UNK UKN, UNK
     Route: 062
  11. IBUPROFEN [Concomitant]
     Dosage: UNK UKN, UNK
  12. PHENERGAN [Concomitant]
     Dosage: UNK UKN, UNK
  13. LOMOTIL [Concomitant]
     Dosage: UNK UKN, UNK
  14. PERCOCET [Concomitant]
     Dosage: UNK UKN, UNK
  15. ASCORBIC ACID [Concomitant]
     Dosage: UNK UKN, UNK
  16. PRILOSEC [Concomitant]
  17. VESICARE [Concomitant]

REACTIONS (10)
  - APPLICATION SITE SWELLING [None]
  - STARING [None]
  - APPLICATION SITE PRURITUS [None]
  - GAIT DISTURBANCE [None]
  - PHARYNGITIS STREPTOCOCCAL [None]
  - UPPER RESPIRATORY TRACT INFECTION [None]
  - RED BLOOD CELL COUNT INCREASED [None]
  - NASOPHARYNGITIS [None]
  - INCREASED UPPER AIRWAY SECRETION [None]
  - LYMPHOCYTE COUNT DECREASED [None]
